FAERS Safety Report 12879198 (Version 2)
Quarter: 2016Q4

REPORT INFORMATION
  Report Type: Spontaneous
  Country: IN (occurrence: IN)
  Receive Date: 20161025
  Receipt Date: 20161104
  Transmission Date: 20170207
  Serious: No
  Sender: FDA-Public Use
  Company Number: IN-LUPIN PHARMACEUTICALS INC.-E2B_00005464

PATIENT
  Age: 26 Year
  Sex: Female

DRUGS (3)
  1. CEFAXONE VIAL DRY+SOL 1 G 10 ML X 1 [Suspect]
     Active Substance: CEFTRIAXONE SODIUM
     Indication: TYPHOID FEVER
     Route: 065
     Dates: start: 20160509, end: 20160510
  2. GLEVO [Concomitant]
     Active Substance: LEVOFLOXACIN
     Indication: PRODUCT USED FOR UNKNOWN INDICATION
     Route: 048
     Dates: start: 20160507
  3. CALPOL [Concomitant]
     Active Substance: ACETAMINOPHEN
     Indication: TYPHOID FEVER
     Route: 048
     Dates: start: 20160507

REACTIONS (1)
  - Pruritus generalised [Recovered/Resolved]

NARRATIVE: CASE EVENT DATE: 20160509
